FAERS Safety Report 10349291 (Version 1)
Quarter: 2014Q3

REPORT INFORMATION
  Report Type: Spontaneous
  Country: US (occurrence: US)
  Receive Date: 20140730
  Receipt Date: 20140730
  Transmission Date: 20150326
  Serious: Yes (Other)
  Sender: FDA-Public Use
  Company Number: US-AMGEN INC.-USASP2014056754

PATIENT
  Age: 58 Year
  Sex: Male

DRUGS (5)
  1. PREDNISONE. [Concomitant]
     Active Substance: PREDNISONE
     Dosage: UNK
  2. ENBREL [Suspect]
     Active Substance: ETANERCEPT
     Indication: PSORIASIS
  3. ENBREL [Suspect]
     Active Substance: ETANERCEPT
     Indication: PSORIATIC ARTHROPATHY
  4. ENBREL [Suspect]
     Active Substance: ETANERCEPT
     Indication: RHEUMATOID ARTHRITIS
     Dosage: 50 MG, QWK
     Route: 065
     Dates: start: 20070605, end: 20140719
  5. METHOTREXATE [Concomitant]
     Active Substance: METHOTREXATE
     Dosage: 15 TABLETS (UNKNOWN DOSAGE) ONCE A WEEK
     Dates: start: 1997

REACTIONS (13)
  - Basal cell carcinoma [Recovered/Resolved]
  - Weight decreased [Recovered/Resolved]
  - Condition aggravated [Recovered/Resolved]
  - Umbilical hernia [Recovered/Resolved]
  - Psoriasis [Not Recovered/Not Resolved]
  - Inguinal hernia [Recovered/Resolved]
  - Haemorrhoids [Recovered/Resolved]
  - Intestinal mass [Recovered/Resolved]
  - Sinusitis [Recovered/Resolved]
  - Infection [Recovered/Resolved]
  - Precancerous skin lesion [Recovered/Resolved]
  - Squamous cell carcinoma [Recovered/Resolved]
  - Joint swelling [Recovered/Resolved]

NARRATIVE: CASE EVENT DATE: 201404
